FAERS Safety Report 8399236-7 (Version None)
Quarter: 2012Q2

REPORT INFORMATION
  Report Type: 
  Country: None (occurrence: None)
  Receive Date: 20120531
  Receipt Date: 20120522
  Transmission Date: 20120825
  Serious: Yes (Other)
  Sender: FDA-Public Use
  Company Number: US-GLAXOSMITHKLINE-A0979393A

PATIENT
  Age: 65 Year
  Sex: Male

DRUGS (3)
  1. ALKERAN [Suspect]
     Indication: MULTIPLE MYELOMA
     Dosage: 18MG AT NIGHT
     Route: 048
     Dates: start: 20110525, end: 20110528
  2. REVLIMID [Suspect]
     Indication: MULTIPLE MYELOMA
     Dosage: 15MG CYCLIC
     Route: 048
     Dates: start: 20110301, end: 20110601
  3. PREDNISONE [Concomitant]
     Indication: MULTIPLE MYELOMA

REACTIONS (2)
  - WHITE BLOOD CELL COUNT DECREASED [None]
  - NEUTROPENIA [None]
